FAERS Safety Report 12566475 (Version 1)
Quarter: 2016Q3

REPORT INFORMATION
  Report Type: Spontaneous
  Country: US (occurrence: US)
  Receive Date: 20160718
  Receipt Date: 20160718
  Transmission Date: 20161109
  Serious: No
  Sender: FDA-Public Use
  Company Number: GXBR2016US000999

PATIENT
  Age: 61 Year
  Sex: Female

DRUGS (2)
  1. AMOXICILLIN CAPSULES, USP [Suspect]
     Active Substance: AMOXICILLIN
     Indication: INFECTION
     Dosage: 500 MG, BID
     Route: 048
     Dates: start: 20160212, end: 20160222
  2. SENNOKOTT [Concomitant]
     Dosage: UNK DF, UNK

REACTIONS (2)
  - Diarrhoea [Recovered/Resolved]
  - Gastrointestinal mucosal exfoliation [Recovered/Resolved]
